FAERS Safety Report 14247932 (Version 1)
Quarter: 2017Q4

REPORT INFORMATION
  Report Type: Spontaneous
  Country: US (occurrence: US)
  Receive Date: 20171204
  Receipt Date: 20171204
  Transmission Date: 20180321
  Serious: No
  Sender: FDA-Public Use
  Company Number: US-SUNOVION-2017SUN005070

PATIENT
  Age: 60 Year
  Sex: Male
  Weight: 92.97 kg

DRUGS (3)
  1. LATUDA [Suspect]
     Active Substance: LURASIDONE HYDROCHLORIDE
     Indication: BIPOLAR II DISORDER
     Dosage: 20 MG, QD
     Route: 048
     Dates: start: 201701
  2. SEROQUEL [Suspect]
     Active Substance: QUETIAPINE FUMARATE
  3. LATUDA [Suspect]
     Active Substance: LURASIDONE HYDROCHLORIDE
     Dosage: 80 MG, QD
     Route: 048
     Dates: start: 201711

REACTIONS (4)
  - Weight increased [Unknown]
  - Mania [Unknown]
  - Erectile dysfunction [Unknown]
  - Weight decreased [Unknown]
